FAERS Safety Report 6154271-4 (Version None)
Quarter: 2009Q2

REPORT INFORMATION
  Report Type: 
  Country: None (occurrence: None)
  Receive Date: 20090414
  Receipt Date: 20090410
  Transmission Date: 20091009
  Serious: Yes (Hospitalization)
  Sender: FDA-Public Use
  Company Number: US-B.I. PHARMACEUTICALS,INC./RIDGEFIELD-2009-BP-02445BP

PATIENT
  Sex: Male

DRUGS (16)
  1. FLOMAX [Suspect]
     Indication: BENIGN PROSTATIC HYPERPLASIA
     Dosage: .4MG
     Route: 048
     Dates: start: 20030101
  2. COUMADIN [Concomitant]
     Indication: ATRIAL FIBRILLATION
     Dosage: 5MG
     Route: 048
  3. DIGOXIN [Concomitant]
     Indication: ATRIAL FIBRILLATION
     Route: 048
  4. DIGOXIN [Concomitant]
     Route: 048
  5. DILTIAZEM [Concomitant]
     Indication: ATRIAL FIBRILLATION
     Dosage: 240MG
  6. ADVAIR HFA [Concomitant]
     Indication: LUNG NEOPLASM MALIGNANT
  7. SPIRIVA [Concomitant]
     Indication: LUNG NEOPLASM MALIGNANT
  8. ZOCOR [Concomitant]
     Dosage: 20MG
     Route: 048
  9. OMEPRAZOLE [Concomitant]
  10. KOEPNEX [Concomitant]
  11. LASIX [Concomitant]
     Dosage: 80MG
     Route: 048
  12. VISION FORMULA [Concomitant]
  13. SILVER OVER 50 VITAMIN [Concomitant]
  14. FIBERCON [Concomitant]
  15. D-3 IU 1000 [Concomitant]
  16. ALLBEE 2-800 [Concomitant]

REACTIONS (3)
  - OEDEMA PERIPHERAL [None]
  - PNEUMONIA [None]
  - PROSTATIC SPECIFIC ANTIGEN INCREASED [None]
